FAERS Safety Report 8473747-8 (Version None)
Quarter: 2012Q2

REPORT INFORMATION
  Report Type: 
  Country: None (occurrence: None)
  Receive Date: 20120628
  Receipt Date: 20111013
  Transmission Date: 20120825
  Serious: Yes (Death)
  Sender: FDA-Public Use
  Company Number: US-MYLANLABS-2011S1021409

PATIENT
  Sex: Male

DRUGS (10)
  1. CLOZAPINE [Suspect]
     Route: 048
  2. AMLODIPINE [Concomitant]
  3. LISINOPRIL [Concomitant]
  4. RAMIPRIL [Concomitant]
  5. ATENOLOL [Concomitant]
  6. CLOZAPINE [Suspect]
     Indication: SCHIZOPHRENIA
     Route: 048
  7. CLONIDINE [Concomitant]
  8. COGENTIN [Concomitant]
  9. RISPERDAL [Concomitant]
  10. ZYPREXA [Concomitant]

REACTIONS (1)
  - DEATH [None]
